FAERS Safety Report 21040822 (Version 2)
Quarter: 2022Q3

REPORT INFORMATION
  Report Type: Report from Study
  Country: CN (occurrence: CN)
  Receive Date: 20220704
  Receipt Date: 20220728
  Transmission Date: 20221026
  Serious: Yes (Hospitalization, Other)
  Sender: FDA-Public Use
  Company Number: CN-BRISTOL-MYERS SQUIBB COMPANY-2022-065844

PATIENT
  Age: 65 Year
  Sex: Male
  Weight: 70 kg

DRUGS (63)
  1. AZACITIDINE [Suspect]
     Active Substance: AZACITIDINE
     Indication: Acute myeloid leukaemia
     Dosage: 1 IN 1 D
     Route: 058
     Dates: start: 20220514, end: 20220520
  2. VENETOCLAX [Suspect]
     Active Substance: VENETOCLAX
     Indication: Acute myeloid leukaemia
     Dosage: 400 MG (400 MG,-
     Route: 048
     Dates: start: 20220514, end: 20220524
  3. VENETOCLAX [Suspect]
     Active Substance: VENETOCLAX
     Dosage: 1 IN 1 D
     Route: 048
     Dates: start: 20220527, end: 20220528
  4. VENETOCLAX [Suspect]
     Active Substance: VENETOCLAX
     Dosage: 1 IN 1 D
     Route: 048
     Dates: start: 20220629
  5. AMLODIPINE BESYLATE [Concomitant]
     Active Substance: AMLODIPINE BESYLATE
     Indication: Hypertension
     Route: 048
     Dates: start: 2005
  6. AMLODIPINE BESYLATE [Concomitant]
     Active Substance: AMLODIPINE BESYLATE
     Route: 048
  7. INSULIN ASPART [Concomitant]
     Active Substance: INSULIN ASPART
     Indication: Hyperglycaemia
     Dosage: 14 IU
     Route: 058
     Dates: start: 20220606
  8. INSULIN ASPART [Concomitant]
     Active Substance: INSULIN ASPART
     Dosage: 12 IU
     Route: 058
     Dates: start: 20220606
  9. INSULIN ASPART [Concomitant]
     Active Substance: INSULIN ASPART
     Dosage: 16 IU
     Route: 058
     Dates: start: 20220610
  10. INSULIN ASPART [Concomitant]
     Active Substance: INSULIN ASPART
     Dosage: 14 IU
     Route: 058
     Dates: start: 20220610
  11. INSULIN ASPART [Concomitant]
     Active Substance: INSULIN ASPART
     Dosage: 300 IU,1 ONCE
     Route: 058
     Dates: start: 20220601
  12. POTASSIUM CHLORIDE [Concomitant]
     Active Substance: POTASSIUM CHLORIDE
     Indication: Dehydration
     Dosage: 1 IN 1 D
     Dates: start: 20220522, end: 20220526
  13. POTASSIUM CHLORIDE [Concomitant]
     Active Substance: POTASSIUM CHLORIDE
     Dosage: 2 IN 1 D
     Dates: start: 20220527, end: 20220529
  14. POTASSIUM CHLORIDE [Concomitant]
     Active Substance: POTASSIUM CHLORIDE
     Dosage: 1 ONCE
     Route: 041
     Dates: start: 20220531, end: 20220531
  15. POTASSIUM CHLORIDE [Concomitant]
     Active Substance: POTASSIUM CHLORIDE
     Dosage: 1 ONCE
     Route: 041
     Dates: start: 20220530
  16. POTASSIUM CHLORIDE [Concomitant]
     Active Substance: POTASSIUM CHLORIDE
     Dosage: 1 IN 1 D
     Route: 041
     Dates: start: 20220602
  17. POTASSIUM CHLORIDE [Concomitant]
     Active Substance: POTASSIUM CHLORIDE
     Dosage: 1 IN 1 D
     Route: 041
     Dates: start: 20220607
  18. POTASSIUM CHLORIDE [Concomitant]
     Active Substance: POTASSIUM CHLORIDE
     Dosage: 1 IN 1 D
     Route: 041
     Dates: start: 20220613
  19. POTASSIUM CHLORIDE [Concomitant]
     Active Substance: POTASSIUM CHLORIDE
     Dosage: 1 ONCE
     Dates: start: 20220526
  20. RECOMBINANT HUMAN GRANULOCYTE/MACROPHAGE [Concomitant]
     Indication: Granulocyte count increased
     Dosage: 1 ONCE
     Route: 058
     Dates: start: 20220526
  21. RUPATADINE FUMARATE [Concomitant]
     Active Substance: RUPATADINE FUMARATE
     Indication: Hypersensitivity
     Dosage: 1 ONCE
     Route: 048
     Dates: start: 20220528
  22. RUPATADINE FUMARATE [Concomitant]
     Active Substance: RUPATADINE FUMARATE
     Dosage: 1 IN 1 D
     Route: 048
     Dates: start: 20220603
  23. RUPATADINE FUMARATE [Concomitant]
     Active Substance: RUPATADINE FUMARATE
     Dosage: 1 IN 1 D
     Route: 048
     Dates: start: 20220610
  24. INSULIN DEGLUDEC [Concomitant]
     Active Substance: INSULIN DEGLUDEC
     Indication: Hyperglycaemia
     Dosage: 1 IN 1 D
     Route: 058
     Dates: start: 20220602
  25. INSULIN DEGLUDEC [Concomitant]
     Active Substance: INSULIN DEGLUDEC
     Dosage: 1 ONCE
     Route: 058
     Dates: start: 20220604
  26. TRAMADOL HYDROCHLORIDE [Concomitant]
     Active Substance: TRAMADOL HYDROCHLORIDE
     Indication: Pain
     Dosage: 1 ONCE
     Route: 030
     Dates: start: 20220605
  27. TRAMADOL HYDROCHLORIDE [Concomitant]
     Active Substance: TRAMADOL HYDROCHLORIDE
     Dosage: 3 IN 1 D
     Route: 030
     Dates: start: 20220607
  28. TRAMADOL HYDROCHLORIDE [Concomitant]
     Active Substance: TRAMADOL HYDROCHLORIDE
     Dosage: 2 IN 1 D
     Route: 030
     Dates: start: 20220608
  29. TRAMADOL HYDROCHLORIDE [Concomitant]
     Active Substance: TRAMADOL HYDROCHLORIDE
     Dosage: 1 IN 1 D
     Route: 030
     Dates: start: 20220609
  30. TRAMADOL HYDROCHLORIDE [Concomitant]
     Active Substance: TRAMADOL HYDROCHLORIDE
     Dosage: 1 IN 1 D
     Route: 030
     Dates: start: 20220613
  31. LINEZOLID [Concomitant]
     Active Substance: LINEZOLID
     Indication: Infection
     Dosage: 1 IN 12 HR
     Route: 041
     Dates: start: 20220606
  32. OXYCODONE HYDROCHLORIDE [Concomitant]
     Active Substance: OXYCODONE HYDROCHLORIDE
     Indication: Pain
     Dosage: 1 ONCE
     Route: 048
     Dates: start: 20220611
  33. OXYCODONE HYDROCHLORIDE [Concomitant]
     Active Substance: OXYCODONE HYDROCHLORIDE
     Dosage: 1 ONCE
     Route: 048
     Dates: start: 20220615
  34. METFORMIN HYDROCHLORIDE [Concomitant]
     Active Substance: METFORMIN HYDROCHLORIDE
     Indication: Hyperglycaemia
     Dosage: 1 IN 1 D
     Route: 048
     Dates: start: 2021
  35. PROPACETAMOL HYDROCHLORIDE [Concomitant]
     Active Substance: PROPACETAMOL HYDROCHLORIDE
     Indication: Pyrexia
     Dosage: 1 ONCE
     Route: 041
     Dates: start: 20220527
  36. PROPACETAMOL HYDROCHLORIDE [Concomitant]
     Active Substance: PROPACETAMOL HYDROCHLORIDE
     Dates: start: 20220530
  37. DICLOFENAC SODIUM [Concomitant]
     Active Substance: DICLOFENAC SODIUM
     Indication: Pyrexia
     Dosage: 1 ONCE
     Route: 054
     Dates: start: 20220528
  38. DICLOFENAC SODIUM [Concomitant]
     Active Substance: DICLOFENAC SODIUM
     Dosage: 1 ONCE
     Route: 054
     Dates: start: 20220529
  39. DICLOFENAC SODIUM [Concomitant]
     Active Substance: DICLOFENAC SODIUM
     Dosage: 1 ONCE
     Route: 054
     Dates: start: 20220609
  40. HEPARIN SODIUM [Concomitant]
     Active Substance: HEPARIN SODIUM
     Indication: Thrombosis
     Dosage: 1 ONCE
     Route: 058
     Dates: start: 20220605
  41. HEPARIN SODIUM [Concomitant]
     Active Substance: HEPARIN SODIUM
     Dosage: 1 ONCE
     Route: 058
     Dates: start: 20220613
  42. LIDOCAINE HYDROCHLORIDE [Concomitant]
     Active Substance: LIDOCAINE HYDROCHLORIDE
     Dosage: 1 ONCE
     Route: 040
     Dates: start: 20220605
  43. DEXAMETHASONE SODIUM PHOSPHATE [Concomitant]
     Active Substance: DEXAMETHASONE SODIUM PHOSPHATE
     Indication: Pyrexia
     Dosage: 1 IN 1 D
     Route: 040
     Dates: start: 20220601
  44. DEXAMETHASONE SODIUM PHOSPHATE [Concomitant]
     Active Substance: DEXAMETHASONE SODIUM PHOSPHATE
     Dosage: 1 IN 1 D
     Route: 040
     Dates: start: 20220605
  45. DEXAMETHASONE SODIUM PHOSPHATE [Concomitant]
     Active Substance: DEXAMETHASONE SODIUM PHOSPHATE
     Dosage: 1 ONCE
     Route: 040
     Dates: start: 20220614
  46. MONTMORILLONITE [Concomitant]
     Active Substance: MONTMORILLONITE
     Indication: Diarrhoea
     Dosage: 1 ONCE
     Route: 048
     Dates: start: 20220607
  47. ALBUMIN HUMAN [Concomitant]
     Active Substance: ALBUMIN HUMAN
     Indication: Blood albumin increased
     Dosage: 1 IN 1 D
     Route: 041
     Dates: start: 20220607
  48. GRANULOCYTE COLONY-STIMULATING FACTOR NOS [Concomitant]
     Active Substance: GRANULOCYTE COLONY-STIMULATING FACTOR NOS
     Indication: Neutrophil count
     Dosage: 1 ONCE
     Route: 058
     Dates: start: 20220610
  49. CEFOPERAZONE SODIUM\SULBACTAM SODIUM [Concomitant]
     Active Substance: CEFOPERAZONE SODIUM\SULBACTAM SODIUM
     Indication: Infection
     Route: 041
     Dates: start: 202206, end: 202206
  50. FUROSEMIDE [Concomitant]
     Active Substance: FUROSEMIDE
     Indication: Polyuria
     Route: 058
     Dates: start: 20220526, end: 20220526
  51. FUROSEMIDE [Concomitant]
     Active Substance: FUROSEMIDE
     Route: 058
     Dates: start: 20220528
  52. FUROSEMIDE [Concomitant]
     Active Substance: FUROSEMIDE
     Route: 058
     Dates: start: 20220530, end: 20220530
  53. FUROSEMIDE [Concomitant]
     Active Substance: FUROSEMIDE
     Route: 058
     Dates: start: 20220530, end: 20220530
  54. METOCLOPRAMIDE HYDROCHLORIDE [Concomitant]
     Active Substance: METOCLOPRAMIDE HYDROCHLORIDE
     Indication: Vomiting
     Route: 040
     Dates: start: 20220527, end: 20220527
  55. DESLANOSIDE [Concomitant]
     Active Substance: DESLANOSIDE
  56. INSULIN DEGLUDEC [Concomitant]
     Active Substance: INSULIN DEGLUDEC
     Indication: Hyperglycaemia
     Route: 058
     Dates: start: 20220602, end: 20220602
  57. INSULIN DEGLUDEC [Concomitant]
     Active Substance: INSULIN DEGLUDEC
     Route: 058
     Dates: start: 20220604, end: 20220604
  58. ESTAZOLAMUM [Concomitant]
     Dates: start: 20220604, end: 20220604
  59. CELECOXIB [Concomitant]
     Active Substance: CELECOXIB
     Indication: Pain
     Dates: start: 20220610, end: 20220610
  60. POSACONAZOLE [Concomitant]
     Active Substance: POSACONAZOLE
     Indication: Infection
     Dates: start: 202206
  61. HUMAN IMMUNOGLOBULIN G [Concomitant]
     Active Substance: HUMAN IMMUNOGLOBULIN G
     Indication: Infection
     Dosage: ONCE
     Dates: start: 20220604, end: 20220604
  62. METOPROLOL SUCCINATE [Concomitant]
     Active Substance: METOPROLOL SUCCINATE
     Indication: Cardiac failure
     Dosage: 1 IN 1 DAY
     Route: 048
     Dates: start: 20220601, end: 20220601
  63. METOPROLOL SUCCINATE [Concomitant]
     Active Substance: METOPROLOL SUCCINATE
     Route: 048
     Dates: start: 20220604, end: 20220604

REACTIONS (4)
  - Anaemia [Recovered/Resolved]
  - Pain [Unknown]
  - Pyrexia [Unknown]
  - Pneumonia [Unknown]

NARRATIVE: CASE EVENT DATE: 20220601
